FAERS Safety Report 11546489 (Version 1)
Quarter: 2015Q3

REPORT INFORMATION
  Report Type: Spontaneous
  Country: US (occurrence: US)
  Receive Date: 20150924
  Receipt Date: 20150924
  Transmission Date: 20151125
  Serious: Yes (Other)
  Sender: FDA-Public Use
  Company Number: US-LPDUSPRD-20150721

PATIENT
  Age: 62 Year
  Sex: Female

DRUGS (1)
  1. INJECTAFER [Suspect]
     Active Substance: FERRIC CARBOXYMALTOSE
     Dosage: UNKNOWN DOSE
     Route: 042
     Dates: start: 201507, end: 201507

REACTIONS (6)
  - LE cells present [Unknown]
  - Mean cell volume increased [Unknown]
  - Serum ferritin decreased [Unknown]
  - Adverse drug reaction [Unknown]
  - Antibody test positive [Unknown]
  - Asthenia [Unknown]
